FAERS Safety Report 8978132 (Version 2)
Quarter: 2013Q1

REPORT INFORMATION
  Report Type: Report from Study
  Country: AU (occurrence: AU)
  Receive Date: 20121220
  Receipt Date: 20130104
  Transmission Date: 20140127
  Serious: Yes (Life-Threatening, Hospitalization, Other)
  Sender: FDA-Public Use
  Company Number: AU-BRISTOL-MYERS SQUIBB COMPANY-17202656

PATIENT
  Age: 69 Year
  Sex: Male
  Weight: 67 kg

DRUGS (11)
  1. MITOMYCIN-C [Suspect]
     Indication: COLORECTAL CANCER METASTATIC
     Dosage: INJ
     Route: 042
     Dates: start: 20061013
  2. AVASTIN [Suspect]
     Indication: COLORECTAL CANCER METASTATIC
     Dosage: INJ
     Route: 042
     Dates: start: 20061013
  3. XELODA [Suspect]
     Indication: COLORECTAL CANCER METASTATIC
     Dosage: TABLET
     Route: 048
     Dates: start: 20061013
  4. NIZATIDINE [Concomitant]
     Indication: ILL-DEFINED DISORDER
     Route: 048
     Dates: start: 200608
  5. LISINOPRIL [Concomitant]
     Indication: ILL-DEFINED DISORDER
     Route: 048
     Dates: start: 1998
  6. PARACETAMOL [Concomitant]
     Indication: PROPHYLAXIS
     Dosage: 2 IN AS REQ
     Route: 048
     Dates: start: 20061030, end: 20061101
  7. COLOXYL + SENNA [Concomitant]
     Indication: PROPHYLAXIS
     Dosage: 02NOV06-02NOV06,06NMOV06-06NOV06,09NOV06-ONGN
     Route: 048
     Dates: start: 20061102
  8. BISACODYL [Concomitant]
     Indication: PROPHYLAXIS
     Route: 054
     Dates: start: 20061103, end: 20061103
  9. GLYCEROL [Concomitant]
     Indication: PROPHYLAXIS
     Route: 054
     Dates: start: 20061103, end: 20061103
  10. COLOXYL [Concomitant]
     Indication: PROPHYLAXIS
     Route: 048
     Dates: start: 20061109
  11. LASIX [Concomitant]
     Indication: PROPHYLAXIS
     Route: 042
     Dates: start: 20080409, end: 20080409

REACTIONS (3)
  - Malignant hypertension [Recovered/Resolved]
  - Intestinal obstruction [Not Recovered/Not Resolved]
  - Ileus paralytic [Recovered/Resolved]
